FAERS Safety Report 6034041-8 (Version None)
Quarter: 2009Q1

REPORT INFORMATION
  Report Type: 
  Country: None (occurrence: None)
  Receive Date: 20090108
  Receipt Date: 20090108
  Transmission Date: 20090719
  Serious: Yes (Life-Threatening)
  Sender: FDA-Public Use
  Company Number: None

PATIENT
  Age: 58 Year
  Sex: Male
  Weight: 87 kg

DRUGS (1)
  1. PACLITAXEL [Suspect]
     Dosage: 400 MG OTHER IV
     Route: 042
     Dates: start: 20081218, end: 20081219

REACTIONS (6)
  - APNOEA [None]
  - BREATH SOUNDS ABNORMAL [None]
  - CYANOSIS [None]
  - RESPIRATORY DISTRESS [None]
  - STRIDOR [None]
  - WHEEZING [None]
